FAERS Safety Report 18120939 (Version 2)
Quarter: 2020Q3

REPORT INFORMATION
  Report Type: Report from Study
  Country: US (occurrence: US)
  Receive Date: 20200803
  Receipt Date: 20200811
  Transmission Date: 20201103
  Serious: Yes (Death, Other)
  Sender: FDA-Public Use
  Company Number: US-GILEAD-2020-0481417

PATIENT
  Sex: Male
  Weight: 120.7 kg

DRUGS (38)
  1. HUMALOG [Concomitant]
     Active Substance: INSULIN LISPRO
  2. SUBLIMAZE [FENTANYL] [Concomitant]
  3. XYLOCAINE [Concomitant]
     Active Substance: LIDOCAINE HYDROCHLORIDE
  4. ZOFRAN [Concomitant]
     Active Substance: ONDANSETRON HYDROCHLORIDE
  5. MICAFUNGIN. [Concomitant]
     Active Substance: MICAFUNGIN SODIUM
  6. MEROPENEM. [Concomitant]
     Active Substance: MEROPENEM
     Dosage: UNK
     Dates: start: 20200629
  7. ACETAMINOPHEN. [Concomitant]
     Active Substance: ACETAMINOPHEN
  8. ZYLOPRIM [Concomitant]
     Active Substance: ALLOPURINOL
  9. PEPCID [Concomitant]
     Active Substance: FAMOTIDINE
  10. VITAMIN D3 [Concomitant]
     Active Substance: CHOLECALCIFEROL
  11. HEPARIN [Concomitant]
     Active Substance: HEPARIN SODIUM
  12. MAGNESIUM SULFATE. [Concomitant]
     Active Substance: MAGNESIUM SULFATE
  13. DEXTROSE AND SODIUM CHLORIDE [Concomitant]
     Active Substance: DEXTROSE MONOHYDRATE\SODIUM CHLORIDE
  14. CYCLOPHOSPHAMIDE. [Suspect]
     Active Substance: CYCLOPHOSPHAMIDE
     Indication: BONE MARROW CONDITIONING REGIMEN
     Dosage: 500 MG/M2, QD
     Route: 042
     Dates: start: 20200624, end: 20200626
  15. FLOMAX [Concomitant]
     Active Substance: TAMSULOSIN HYDROCHLORIDE
  16. ZARXIO [Concomitant]
     Active Substance: FILGRASTIM-SNDZ
  17. TESSALON [Concomitant]
     Active Substance: BENZONATATE
  18. CATHFLO ACTIVASE [Concomitant]
     Active Substance: ALTEPLASE
  19. VANCOMYCIN [Concomitant]
     Active Substance: VANCOMYCIN
     Dosage: UNK
     Dates: start: 20200627
  20. KTE?X19 [Suspect]
     Active Substance: AXICABTAGENE CILOLEUCEL
     Indication: ACUTE LYMPHOCYTIC LEUKAEMIA REFRACTORY
     Dosage: UNK
     Route: 042
     Dates: start: 20200629, end: 20200629
  21. FLUDARABINE [Suspect]
     Active Substance: FLUDARABINE PHOSPHATE
     Indication: BONE MARROW CONDITIONING REGIMEN
     Dosage: 22.5 MG/M2, QD
     Route: 042
     Dates: start: 20200624, end: 20200626
  22. AZITHROMYCIN ANHYDROUS. [Concomitant]
     Active Substance: AZITHROMYCIN ANHYDROUS
     Indication: COUGH
     Dosage: UNK
     Dates: start: 20200626
  23. ROXICODONE [Concomitant]
     Active Substance: OXYCODONE HYDROCHLORIDE
  24. SODIUM CHLORIDE. [Concomitant]
     Active Substance: SODIUM CHLORIDE
  25. PROTONIX [Concomitant]
     Active Substance: PANTOPRAZOLE SODIUM
  26. LASIX [Concomitant]
     Active Substance: FUROSEMIDE
  27. FLONASE [Concomitant]
     Active Substance: FLUTICASONE PROPIONATE
  28. DIFLUCAN [Concomitant]
     Active Substance: FLUCONAZOLE
  29. ALLOPURINOL. [Concomitant]
     Active Substance: ALLOPURINOL
  30. CEFEPIME [Concomitant]
     Active Substance: CEFEPIME HYDROCHLORIDE
     Dosage: UNK
     Dates: start: 20200627, end: 20200629
  31. DEMEROL [Concomitant]
     Active Substance: MEPERIDINE HYDROCHLORIDE
  32. ZOVIRAX [ACICLOVIR SODIUM] [Concomitant]
  33. DITROPAN [Concomitant]
     Active Substance: OXYBUTYNIN CHLORIDE
  34. TOPROL XL [Concomitant]
     Active Substance: METOPROLOL SUCCINATE
  35. OPTISONE [Concomitant]
  36. BENADRYL [Concomitant]
     Active Substance: DIPHENHYDRAMINE HYDROCHLORIDE
  37. SOLU?MEDROL [Concomitant]
     Active Substance: METHYLPREDNISOLONE SODIUM SUCCINATE
  38. ACYCLOVIR [ACICLOVIR] [Concomitant]
     Active Substance: ACYCLOVIR

REACTIONS (4)
  - Cytokine release syndrome [Recovered/Resolved]
  - Cerebrovascular accident [Fatal]
  - Gangrene [Fatal]
  - Neurotoxicity [Fatal]

NARRATIVE: CASE EVENT DATE: 20200703
